FAERS Safety Report 4383960-7 (Version None)
Quarter: 2004Q2

REPORT INFORMATION
  Report Type: 
  Country: None (occurrence: None)
  Receive Date: 20040621
  Receipt Date: 20040610
  Transmission Date: 20050107
  Serious: Yes (Other)
  Sender: FDA-Public Use
  Company Number: US-JNJFOC-20040302253

PATIENT
  Age: 60 Year
  Sex: Female

DRUGS (10)
  1. DURAGESIC [Suspect]
     Indication: PAIN
     Dosage: SEE IMAGE
     Route: 062
     Dates: start: 20031101, end: 20031201
  2. DURAGESIC [Suspect]
     Indication: PAIN
     Dosage: SEE IMAGE
     Route: 062
     Dates: start: 20031201, end: 20031201
  3. DURAGESIC [Suspect]
     Indication: PAIN
     Dosage: SEE IMAGE
     Route: 062
     Dates: start: 20031201, end: 20040302
  4. DURAGESIC [Suspect]
     Indication: PAIN
     Dosage: SEE IMAGE
     Route: 062
     Dates: start: 20040302
  5. DURAGESIC [Suspect]
  6. SYNTHROID [Concomitant]
  7. XANAX [Concomitant]
  8. LEXIPRO (SSRI) [Concomitant]
  9. DIOVAN [Concomitant]
  10. TRAZODONE HCL [Concomitant]

REACTIONS (8)
  - BACK PAIN [None]
  - DIABETES MELLITUS [None]
  - DRUG INEFFECTIVE [None]
  - NAUSEA [None]
  - PAIN IN EXTREMITY [None]
  - PHARMACEUTICAL PRODUCT COMPLAINT [None]
  - SACRAL PAIN [None]
  - VOMITING [None]
